FAERS Safety Report 10791098 (Version 2)
Quarter: 2015Q2

REPORT INFORMATION
  Report Type: Spontaneous
  Country: US (occurrence: US)
  Receive Date: 20150212
  Receipt Date: 20150408
  Transmission Date: 20150821
  Serious: No
  Sender: FDA-Public Use
  Company Number: US-GLAXOSMITHKLINE-US2015GSK019264

PATIENT
  Age: 66 Year
  Sex: Male
  Weight: 90.7 kg

DRUGS (14)
  1. XARELTO [Concomitant]
     Active Substance: RIVAROXABAN
  2. TAFINLAR [Suspect]
     Active Substance: DABRAFENIB MESYLATE
     Indication: MALIGNANT MELANOMA
     Dosage: 150 MG, BID
     Route: 048
     Dates: start: 20150102, end: 20150203
  3. TAFINLAR [Suspect]
     Active Substance: DABRAFENIB MESYLATE
     Dosage: 150 MG, BID
     Route: 048
     Dates: start: 20150206
  4. ZOLPIDEM [Concomitant]
     Active Substance: ZOLPIDEM\ZOLPIDEM TARTRATE
  5. GABAPENTIN. [Concomitant]
     Active Substance: GABAPENTIN
  6. MEKINIST [Suspect]
     Active Substance: TRAMETINIB DIMETHYL SULFOXIDE
     Dosage: 2 MG, QD
     Route: 048
     Dates: start: 20150206
  7. PREDNISOLONE. [Concomitant]
     Active Substance: PREDNISOLONE
  8. FLECAINIDE [Concomitant]
     Active Substance: FLECAINIDE
  9. MEKINIST [Suspect]
     Active Substance: TRAMETINIB DIMETHYL SULFOXIDE
     Indication: MALIGNANT MELANOMA
     Dosage: 2 MG, QD
     Route: 048
     Dates: start: 20150102, end: 20150203
  10. TAFINLAR [Suspect]
     Active Substance: DABRAFENIB MESYLATE
     Dosage: 100 MG, BID
     Route: 048
     Dates: start: 20150103
  11. HYDROCODONE BITARTRATE AND ACETAMINOPHEN [Concomitant]
     Active Substance: ACETAMINOPHEN\HYDROCODONE BITARTRATE
  12. METOPROLOL [Concomitant]
     Active Substance: METOPROLOL
  13. PREDNISONE. [Concomitant]
     Active Substance: PREDNISONE
  14. ASPIRIN. [Concomitant]
     Active Substance: ASPIRIN

REACTIONS (9)
  - Incorrect product storage [Unknown]
  - Fatigue [Unknown]
  - Weight decreased [Unknown]
  - Decreased appetite [Unknown]
  - Pyrexia [Unknown]
  - Hyperhidrosis [Unknown]
  - Diarrhoea [Unknown]
  - Chills [Unknown]
  - Arthralgia [Recovered/Resolved]

NARRATIVE: CASE EVENT DATE: 2015
